FAERS Safety Report 8585523-6 (Version None)
Quarter: 2012Q3

REPORT INFORMATION
  Report Type: 
  Country: None (occurrence: None)
  Receive Date: 20120810
  Receipt Date: 20120807
  Transmission Date: 20120928
  Serious: Yes (Death)
  Sender: FDA-Public Use
  Company Number: AU-B.I. PHARMACEUTICALS,INC./RIDGEFIELD-2012-AU-00856AU

PATIENT
  Sex: Male

DRUGS (7)
  1. PRADAXA [Suspect]
     Indication: ATRIAL FIBRILLATION
     Dosage: 220 MG
     Dates: start: 20110411
  2. RISPERDAL [Concomitant]
     Dosage: 1 MG
  3. SIMVASTATIN [Concomitant]
  4. MICARDIS [Concomitant]
  5. SERC [Concomitant]
     Dosage: 16 MG
  6. EFFEXOR [Concomitant]
  7. NEXIUM [Concomitant]

REACTIONS (1)
  - CEREBROVASCULAR ACCIDENT [None]
